FAERS Safety Report 7552988-8 (Version None)
Quarter: 2011Q2

REPORT INFORMATION
  Report Type: 
  Country: None (occurrence: None)
  Receive Date: 20110616
  Receipt Date: 20110602
  Transmission Date: 20111010
  Serious: Yes (Hospitalization, Other)
  Sender: FDA-Public Use
  Company Number: PHEH2007US12470

PATIENT
  Sex: Female

DRUGS (48)
  1. PROTONIX [Concomitant]
  2. K-DUR [Concomitant]
  3. HYDROCHLOROTHIAZIDE [Concomitant]
  4. DILTIAZEM [Concomitant]
  5. FOLIC ACID [Concomitant]
  6. VASOTEC [Concomitant]
  7. MICRO-K [Concomitant]
  8. TAGAMET [Concomitant]
  9. ANTIBIOTICS [Concomitant]
  10. LASIX [Concomitant]
  11. SYNTHROID [Concomitant]
  12. ADVAIR DISKUS 100/50 [Concomitant]
  13. LEVOTHYROXINE SODIUM [Concomitant]
  14. PEN-VEE K [Concomitant]
  15. NYSTATIN [Concomitant]
     Dosage: 5 ML, 4 TIMES A DAY
  16. PERIDEX [Concomitant]
     Dosage: AFTER MEALS THREE TIMES DAILY
  17. AMIODARONE HCL [Concomitant]
  18. TRAVATAN [Concomitant]
  19. ADVIL LIQUI-GELS [Concomitant]
  20. CYCLOBENZAPRINE [Concomitant]
  21. PAMIDRONATE DISODIUM [Suspect]
  22. DIGOXIN [Concomitant]
  23. COSOPT [Concomitant]
  24. FLAGYL [Concomitant]
  25. LORTAB [Concomitant]
  26. NEURONTIN [Concomitant]
  27. CLINDAMYCIN [Concomitant]
  28. ALLOPURINOL [Concomitant]
  29. ACTOS [Concomitant]
  30. TYLENOL W/ CODEINE [Concomitant]
  31. EYE DROPS [Concomitant]
     Indication: GLAUCOMA
  32. VICODIN [Concomitant]
  33. ASPIRIN [Concomitant]
  34. VITAMIN E [Concomitant]
  35. PENICILLIN NOS [Concomitant]
  36. CEPHALEXIN [Concomitant]
     Dosage: UNK
     Dates: start: 20060302, end: 20060525
  37. PLAVIX [Concomitant]
  38. ADVAIR DISKUS 100/50 [Concomitant]
  39. BENICAR [Concomitant]
  40. PRILOSEC [Concomitant]
  41. TYLENOL-500 [Concomitant]
  42. PHENYTOIN SODIUM CAP [Concomitant]
  43. AREDIA [Suspect]
     Indication: OSTEITIS DEFORMANS
  44. LEVAQUIN [Concomitant]
     Dosage: 250MG DAILY
  45. COLACE [Concomitant]
  46. CLONIDINE [Concomitant]
  47. RESTORIL [Concomitant]
  48. PROTONIX [Concomitant]

REACTIONS (97)
  - ANHEDONIA [None]
  - TOOTH INFECTION [None]
  - SYNCOPE [None]
  - CARDIAC ARREST [None]
  - PULMONARY VALVE INCOMPETENCE [None]
  - WOUND INFECTION STAPHYLOCOCCAL [None]
  - PLEURAL EFFUSION [None]
  - OCCULT BLOOD [None]
  - KLEBSIELLA INFECTION [None]
  - MYOCARDIAL INFARCTION [None]
  - LOOSE TOOTH [None]
  - SPONDYLOLYSIS [None]
  - OSTEOARTHRITIS [None]
  - DEEP VEIN THROMBOSIS [None]
  - CHEST PAIN [None]
  - OSTEONECROSIS OF JAW [None]
  - DEFORMITY [None]
  - GOUT [None]
  - ASPIRATION JOINT [None]
  - ARTHRALGIA [None]
  - RENAL FAILURE [None]
  - WHITE BLOOD CELLS URINE POSITIVE [None]
  - BRADYCARDIA [None]
  - CARPAL TUNNEL SYNDROME [None]
  - HEART RATE IRREGULAR [None]
  - LIFE EXPECTANCY SHORTENED [None]
  - INJURY [None]
  - ACQUIRED DIAPHRAGMATIC EVENTRATION [None]
  - TRICUSPID VALVE INCOMPETENCE [None]
  - IRRITABLE BOWEL SYNDROME [None]
  - BETA HAEMOLYTIC STREPTOCOCCAL INFECTION [None]
  - URINARY TRACT INFECTION BACTERIAL [None]
  - URINE ABNORMALITY [None]
  - DIARRHOEA [None]
  - ASTHMA [None]
  - PRURITUS [None]
  - ATRIAL FIBRILLATION [None]
  - CARDIOMEGALY [None]
  - INTERVERTEBRAL DISC DEGENERATION [None]
  - SYNOVITIS [None]
  - DISCOMFORT [None]
  - HYPOPHAGIA [None]
  - BONE DISORDER [None]
  - SINUS BRADYCARDIA [None]
  - RHEUMATOID ARTHRITIS [None]
  - HYPOTHYROIDISM [None]
  - INSOMNIA [None]
  - POLYNEUROPATHY [None]
  - INCONTINENCE [None]
  - RECTAL HAEMORRHAGE [None]
  - GLOSSODYNIA [None]
  - DIABETES MELLITUS [None]
  - OEDEMA PERIPHERAL [None]
  - PNEUMONIA [None]
  - SUPRAVENTRICULAR TACHYCARDIA [None]
  - ARTHRITIS BACTERIAL [None]
  - JOINT STIFFNESS [None]
  - INFLAMMATION [None]
  - DYSPNOEA [None]
  - EMOTIONAL DISTRESS [None]
  - ANXIETY [None]
  - LEFT VENTRICULAR HYPERTROPHY [None]
  - LEUKOCYTOSIS [None]
  - GASTROOESOPHAGEAL REFLUX DISEASE [None]
  - SICK SINUS SYNDROME [None]
  - GASTRIC ULCER [None]
  - LYMPHADENOPATHY [None]
  - HEMIPARESIS [None]
  - INFECTION [None]
  - FISTULA [None]
  - OSTEOMYELITIS [None]
  - PHYSICAL DISABILITY [None]
  - THROMBOSIS [None]
  - AORTIC ARTERIOSCLEROSIS [None]
  - SLEEP APNOEA SYNDROME [None]
  - DEVICE RELATED INFECTION [None]
  - VERTIGO [None]
  - ABDOMINAL DISCOMFORT [None]
  - NASAL ULCER [None]
  - BREAST OEDEMA [None]
  - ATELECTASIS [None]
  - PEPTIC ULCER [None]
  - CARDIAC FAILURE CONGESTIVE [None]
  - PAIN [None]
  - PAIN IN JAW [None]
  - SWELLING [None]
  - WHEEZING [None]
  - ANAEMIA [None]
  - INFECTION SUSCEPTIBILITY INCREASED [None]
  - HYPOTENSION [None]
  - FUSOBACTERIUM INFECTION [None]
  - ABDOMINAL PAIN [None]
  - MOBILITY DECREASED [None]
  - GASTROINTESTINAL HAEMORRHAGE [None]
  - TOOTH FRACTURE [None]
  - ARTHROPATHY [None]
  - HYPOVOLAEMIA [None]
